FAERS Safety Report 9902767 (Version 1)
Quarter: 2014Q1

REPORT INFORMATION
  Report Type: Report from Study
  Country: BR (occurrence: BR)
  Receive Date: 20140217
  Receipt Date: 20140217
  Transmission Date: 20141002
  Serious: Yes (Hospitalization, Other)
  Sender: FDA-Public Use
  Company Number: PHHY2014BR018590

PATIENT
  Sex: Female
  Weight: 60 kg

DRUGS (4)
  1. EXELON PATCH [Suspect]
     Indication: DEMENTIA ALZHEIMER^S TYPE
     Dosage: 4.6 MG, QD (9MG/5CM2)
     Route: 062
  2. VITAMIN B1 [Concomitant]
     Indication: VITAMIN SUPPLEMENTATION
     Dosage: UNK UKN, UNK
  3. LOSARTAN [Concomitant]
     Indication: BLOOD PRESSURE
     Dosage: UNK UKN, UNK
  4. DONAREN [Concomitant]
     Indication: RELAXATION THERAPY
     Dosage: UNK UKN, UNK

REACTIONS (2)
  - Ischaemic stroke [Unknown]
  - Nervous system disorder [Unknown]
